FAERS Safety Report 8214652-1 (Version None)
Quarter: 2012Q1

REPORT INFORMATION
  Report Type: 
  Country: None (occurrence: None)
  Receive Date: 20120316
  Receipt Date: 20120312
  Transmission Date: 20120608
  Serious: Yes (Other)
  Sender: FDA-Public Use
  Company Number: US-AMGEN-USASP2011024376

PATIENT
  Age: 56 Year
  Sex: Female

DRUGS (5)
  1. ENBREL [Suspect]
     Indication: ANKYLOSING SPONDYLITIS
     Dosage: 50 MG, QWK
     Dates: start: 20040101
  2. ENBREL [Suspect]
     Indication: PSORIATIC ARTHROPATHY
     Dosage: 50 MG, QWK
     Dates: start: 20050826
  3. ENBREL [Suspect]
     Dosage: UNK
  4. ENBREL [Suspect]
     Indication: PSORIASIS
     Dosage: UNK UNK, QWK
     Dates: start: 20120209
  5. HUMIRA [Concomitant]
     Dosage: UNK

REACTIONS (17)
  - MUSCULOSKELETAL PAIN [None]
  - NECK PAIN [None]
  - DIARRHOEA [None]
  - JOINT INJECTION [None]
  - MENISCUS LESION [None]
  - OVERWEIGHT [None]
  - PERIPHERAL ARTERIAL OCCLUSIVE DISEASE [None]
  - TEMPORAL ARTERITIS [None]
  - MUSCLE TIGHTNESS [None]
  - COUGH [None]
  - PSORIASIS [None]
  - ARTHRALGIA [None]
  - CONTUSION [None]
  - OPTIC ISCHAEMIC NEUROPATHY [None]
  - HYPERTENSION [None]
  - CATARACT [None]
  - RESPIRATORY TRACT CONGESTION [None]
